FAERS Safety Report 9177935 (Version 1)
Quarter: 2013Q1

REPORT INFORMATION
  Report Type: Spontaneous
  Country: US (occurrence: None)
  Receive Date: 20130315
  Receipt Date: 20130315
  Transmission Date: 20140127
  Serious: Yes (Hospitalization, Other)
  Sender: FDA-Public Use
  Company Number: 2013-03847

PATIENT
  Age: 64 Year
  Sex: Male

DRUGS (2)
  1. HYDROCHLOROTHIAZIDE (WATSON LABORATORIES)(HYDROCHLOROTHIAZIDE) UNK, UNKUNK [Suspect]
     Indication: HYPERTENSION
  2. TUMS?/00193601/(CALCIUM CARBONATE, MAGNESIUM CARBONATE, MAGNESIUM TRISILICATE) [Suspect]
     Indication: GASTROOESOPHAGEAL REFLUX DISEASE
     Dosage: FROM 5-6 TABLETS TO 20-30 TABLETS PER DAY
     Route: 048

REACTIONS (8)
  - Milk-alkali syndrome [None]
  - Potentiating drug interaction [None]
  - Renal failure [None]
  - Sinus tachycardia [None]
  - Hypercalcaemia [None]
  - Alkalosis [None]
  - Asthenia [None]
  - Dizziness [None]
